FAERS Safety Report 15190183 (Version 6)
Quarter: 2019Q1

REPORT INFORMATION
  Report Type: Spontaneous
  Country: DE (occurrence: DE)
  Receive Date: 20180724
  Receipt Date: 20190122
  Transmission Date: 20190417
  Serious: Yes (Death)
  Sender: FDA-Public Use
  Company Number: DE-PFIZER INC-2013170104

PATIENT
  Age: 40 Year
  Sex: Female
  Weight: 47 kg

DRUGS (12)
  1. CITALOPRAM [Suspect]
     Active Substance: CITALOPRAM HYDROBROMIDE
     Dosage: UNK
  2. LAMOTRIGINE. [Suspect]
     Active Substance: LAMOTRIGINE
     Dosage: 100MG, (1 IN MORNING AND 2 IN EVENING; PERIOD: WEEK 2)
  3. KEPPRA [Suspect]
     Active Substance: LEVETIRACETAM
     Dosage: 1000MG, (1AND A HALF IN MORNING AND 1AND A HALF IN EVENING)
  4. CLOBAZAM. [Suspect]
     Active Substance: CLOBAZAM
     Dosage: UNK
  5. VIMPAT [Suspect]
     Active Substance: LACOSAMIDE
     Dosage: 100MG (168 TABLETS) (MORNING 1 AND EVENING 1.5 DOSAGE FORM)
  6. VALDOXAN [Suspect]
     Active Substance: AGOMELATINE
     Dosage: 2 DF, 1X/DAY 25MG (98 TABLETS) (2 DF IN EVENING)
  7. LAMOTRIGINE. [Suspect]
     Active Substance: LAMOTRIGINE
     Dosage: 100MG, (1AND A HALF IN MORNING AND 2 IN EVENING; PERIOD: WEEK 3)
  8. DIAMOX SEQUELS [Suspect]
     Active Substance: ACETAZOLAMIDE
     Dosage: 1 DF, 2X/DAY ((1DF IN MORNING AND 1 IN EVENING))
  9. LAMOTRIGINE. [Suspect]
     Active Substance: LAMOTRIGINE
     Dosage: 100MG, (2 IN MORNING AND 2 IN EVENING; PERIOD: AS OF WEEK 4)
  10. LAMOTRIGINE. [Suspect]
     Active Substance: LAMOTRIGINE
     Dosage: 100MG, (1 IN MORNING AND 1 AND A HALF IN EVENING; PERIOD: WEEK 1)
  11. LORAZEPAM. [Suspect]
     Active Substance: LORAZEPAM
     Dosage: UNK, AS NEEDED
  12. CLONAZEPAM. [Suspect]
     Active Substance: CLONAZEPAM
     Dosage: UNK

REACTIONS (3)
  - Completed suicide [Fatal]
  - Death [Fatal]
  - Toxicity to various agents [Fatal]
